FAERS Safety Report 11699938 (Version 1)
Quarter: 2015Q4

REPORT INFORMATION
  Report Type: Spontaneous
  Country: US (occurrence: None)
  Receive Date: 20151103
  Receipt Date: 20151103
  Transmission Date: 20160304
  Serious: Yes (Hospitalization, Other)
  Sender: FDA-Public Use
  Company Number: 54973 AE # 1651

PATIENT
  Age: 3 Month
  Sex: Female

DRUGS (1)
  1. BABY TEETHING [Suspect]
     Active Substance: ATROPA BELLADONNA\CALCIUM PHOSPHATE\CHAMOMILE\COFFEA ARABICA FRUIT
     Indication: TEETHING

REACTIONS (4)
  - Pyrexia [None]
  - Loss of consciousness [None]
  - Seizure [None]
  - Dyspnoea [None]

NARRATIVE: CASE EVENT DATE: 20150903
